FAERS Safety Report 24550247 (Version 1)
Quarter: 2024Q4

REPORT INFORMATION
  Report Type: Spontaneous
  Country: US (occurrence: None)
  Receive Date: 20241025
  Receipt Date: 20241025
  Transmission Date: 20250115
  Serious: Yes (Hospitalization)
  Sender: Public
  Company Number: None

PATIENT
  Age: 74 Year
  Sex: Male

DRUGS (1)
  1. DUPIXENT [Suspect]
     Active Substance: DUPILUMAB
     Dosage: FREQUENCY : WEEKLY;?
     Route: 058
     Dates: start: 20240822, end: 20241024

REACTIONS (2)
  - Hypoacusis [None]
  - Therapy interrupted [None]

NARRATIVE: CASE EVENT DATE: 20241024
